FAERS Safety Report 8336969-2 (Version None)
Quarter: 2012Q2

REPORT INFORMATION
  Report Type: 
  Country: None (occurrence: None)
  Receive Date: 20120501
  Receipt Date: 20120423
  Transmission Date: 20120825
  Serious: Yes (Hospitalization, Other)
  Sender: FDA-Public Use
  Company Number: 2012MA002123

PATIENT
  Age: 47 Year
  Sex: Female

DRUGS (8)
  1. AMISULPRIDE [Concomitant]
  2. ARIPIPRAZOLE [Concomitant]
  3. OLANZAPINE [Concomitant]
  4. FEVERALL [Suspect]
     Indication: PRODUCT USED FOR UNKNOWN INDICATION
  5. CLOZARIL [Suspect]
     Indication: SCHIZOPHRENIA
     Dosage: 100 MG; ;PO
     Route: 048
     Dates: start: 20020212
  6. FLUPENTIXOL [Concomitant]
  7. PIPORTIL DEPOT [Concomitant]
  8. QUETIAPINE [Concomitant]

REACTIONS (8)
  - ELECTROCARDIOGRAM QT SHORTENED [None]
  - DRUG INEFFECTIVE [None]
  - HYPERTENSION [None]
  - BLOOD PRESSURE DECREASED [None]
  - ELECTROCARDIOGRAM ABNORMAL [None]
  - MOOD ALTERED [None]
  - OVERDOSE [None]
  - CARDIAC DISORDER [None]
